FAERS Safety Report 6147718-0 (Version None)
Quarter: 2009Q2

REPORT INFORMATION
  Report Type: 
  Country: None (occurrence: None)
  Receive Date: 20090408
  Receipt Date: 20090403
  Transmission Date: 20091009
  Serious: Yes (Death, Other)
  Sender: FDA-Public Use
  Company Number: IT-NOVOPROD-276657

PATIENT
  Age: 72 Year
  Sex: Male
  Weight: 83 kg

DRUGS (1)
  1. NOVOSEVEN [Suspect]
     Indication: HAEMORRHAGE
     Dosage: 7.2 MG, SINGLE
     Route: 042
     Dates: start: 20070618

REACTIONS (1)
  - DISSEMINATED INTRAVASCULAR COAGULATION [None]
